FAERS Safety Report 6279704-4 (Version None)
Quarter: 2009Q3

REPORT INFORMATION
  Report Type: 
  Country: None (occurrence: None)
  Receive Date: 20090723
  Receipt Date: 20090720
  Transmission Date: 20100115
  Serious: Yes (Death)
  Sender: FDA-Public Use
  Company Number: TH-ROCHE-645063

PATIENT

DRUGS (3)
  1. SAQUINAVIR [Suspect]
     Indication: HIV INFECTION
     Dosage: HARD GEL MESYLATE CAPSULE.
     Route: 065
  2. SAQUINAVIR [Suspect]
     Route: 065
  3. LOPINAVIR AND RITONAVIR [Suspect]
     Indication: HIV INFECTION
     Dosage: FORM: ADULT CAPSULES. STOPPED ON DAY 5. STRENGTH: 133/33 MG. DOSAGE: 230/57.5 MG/M2.
     Route: 065

REACTIONS (1)
  - SEPSIS [None]
